FAERS Safety Report 7249587-4 (Version None)
Quarter: 2011Q1

REPORT INFORMATION
  Report Type: 
  Country: None (occurrence: None)
  Receive Date: 20110128
  Receipt Date: 20101215
  Transmission Date: 20110831
  Serious: Yes (Hospitalization, Other)
  Sender: FDA-Public Use
  Company Number: US-BAYER-201029365NA

PATIENT
  Sex: Female
  Weight: 72.562 kg

DRUGS (4)
  1. UNCODEABLE ^UNCLASSIFIABLE^ [Concomitant]
     Dosage: UNK UNK, PRN
  2. YASMIN [Suspect]
     Indication: CONTRACEPTION
     Dosage: UNK
     Route: 048
     Dates: start: 20080301, end: 20080801
  3. PHENTERMINE [Concomitant]
     Dosage: 37.5 MG, UNK
  4. YAZ [Suspect]
     Indication: CONTRACEPTION
     Dosage: UNK
     Route: 048
     Dates: start: 20080301, end: 20080801

REACTIONS (11)
  - CHOLECYSTITIS CHRONIC [None]
  - CHOLESTEROSIS [None]
  - CHOLELITHIASIS [None]
  - PANCREATITIS [None]
  - GALLBLADDER DISORDER [None]
  - PANCREATITIS ACUTE [None]
  - WEIGHT DECREASED [None]
  - ABDOMINAL PAIN UPPER [None]
  - CHOLECYSTITIS ACUTE [None]
  - NAUSEA [None]
  - DYSPEPSIA [None]
